FAERS Safety Report 5062130-3 (Version None)
Quarter: 2006Q3

REPORT INFORMATION
  Report Type: 
  Country: None (occurrence: None)
  Receive Date: 20060703
  Receipt Date: 20051011
  Transmission Date: 20061208
  Serious: No
  Sender: FDA-Public Use
  Company Number: 2005S1010051

PATIENT
  Age: 42 Year
  Sex: Male

DRUGS (7)
  1. CLOZAPINE [Suspect]
     Indication: SCHIZOPHRENIA
     Dosage: SEE IMAGE
     Route: 048
     Dates: start: 20020102, end: 20050822
  2. CLOZAPINE [Suspect]
     Indication: SCHIZOPHRENIA
     Dosage: SEE IMAGE
     Route: 048
     Dates: start: 20050823, end: 20051004
  3. CLOZAPINE [Suspect]
     Indication: SCHIZOPHRENIA
     Dosage: SEE IMAGE
     Route: 048
     Dates: start: 20051008
  4. HALOPERIDOL [Concomitant]
  5. VALPROATE SODIUM [Concomitant]
  6. BENZTROPINE MESYLATE [Concomitant]
  7. CLONAZEPAM [Concomitant]

REACTIONS (1)
  - GRANULOCYTOPENIA [None]
